FAERS Safety Report 5501255-2 (Version None)
Quarter: 2007Q4

REPORT INFORMATION
  Report Type: 
  Country: None (occurrence: None)
  Receive Date: 20071029
  Receipt Date: 20071025
  Transmission Date: 20080405
  Serious: Yes (Congenital Anomaly)
  Sender: FDA-Public Use
  Company Number: NL-MERCK-0710NLD00035

PATIENT
  Age: 0 Day
  Sex: Male

DRUGS (3)
  1. ALDOMET [Suspect]
     Indication: HYPERTENSION
     Route: 064
     Dates: start: 20050401, end: 20051125
  2. ALDOMET [Suspect]
     Route: 064
     Dates: start: 20070201, end: 20070501
  3. ALDOMET [Suspect]
     Route: 064
     Dates: start: 20070501, end: 20071001

REACTIONS (1)
  - HYPOSPADIAS [None]
